FAERS Safety Report 6578542-2 (Version None)
Quarter: 2010Q1

REPORT INFORMATION
  Report Type: 
  Country: None (occurrence: None)
  Receive Date: 20100211
  Receipt Date: 20100201
  Transmission Date: 20100710
  Serious: Yes (Hospitalization)
  Sender: FDA-Public Use
  Company Number: CA-ABBOTT-10P-028-0623435-00

PATIENT
  Sex: Male

DRUGS (6)
  1. HUMIRA [Suspect]
     Indication: CROHN'S DISEASE
     Route: 058
     Dates: start: 20080208
  2. HUMIRA [Suspect]
     Route: 058
     Dates: start: 20090909
  3. CIPRALEX [Concomitant]
     Indication: DEPRESSION
     Dates: start: 20061001, end: 20081219
  4. CIPRALEX [Concomitant]
     Dates: start: 20081220
  5. IMURAN [Concomitant]
     Indication: CROHN'S DISEASE
     Dates: start: 20080414, end: 20080429
  6. BUPROPION [Concomitant]
     Indication: DEPRESSION
     Dates: start: 20090730

REACTIONS (1)
  - SMALL INTESTINAL OBSTRUCTION [None]
